FAERS Safety Report 18959021 (Version 4)
Quarter: 2021Q2

REPORT INFORMATION
  Report Type: Report from Study
  Country: US (occurrence: US)
  Receive Date: 20210302
  Receipt Date: 20210630
  Transmission Date: 20210717
  Serious: Yes (Hospitalization, Other)
  Sender: FDA-Public Use
  Company Number: US-PFIZER INC-2021198191

PATIENT
  Age: 78 Year
  Sex: Female

DRUGS (4)
  1. FASLODEX [Concomitant]
     Active Substance: FULVESTRANT
     Dosage: UNK
  2. TYLENOL [Concomitant]
     Active Substance: ACETAMINOPHEN
     Indication: ARTHRALGIA
     Dosage: UNK
  3. IBRANCE [Suspect]
     Active Substance: PALBOCICLIB
     Indication: BREAST CANCER FEMALE
     Dosage: 125 MG, CYCLIC [21 DAYS, THEN 7 DAYS OFF]
     Route: 048
     Dates: start: 201902
  4. IBRANCE [Suspect]
     Active Substance: PALBOCICLIB
     Dosage: 125 MG, CYCLIC [21 DAYS, THEN 7 DAYS OFF]
     Route: 048
     Dates: start: 20201216

REACTIONS (10)
  - Product dose omission issue [Unknown]
  - Abscess intestinal [Unknown]
  - Decreased appetite [Not Recovered/Not Resolved]
  - Red blood cell abnormality [Unknown]
  - Hot flush [Unknown]
  - Somnolence [Unknown]
  - Hunger [Not Recovered/Not Resolved]
  - Diverticulitis [Unknown]
  - Weight decreased [Unknown]
  - Fatigue [Not Recovered/Not Resolved]
